FAERS Safety Report 9059822 (Version 1)
Quarter: 2013Q1

REPORT INFORMATION
  Report Type: Spontaneous
  Country: CN (occurrence: CN)
  Receive Date: 20130212
  Receipt Date: 20130212
  Transmission Date: 20140127
  Serious: Yes (Other)
  Sender: FDA-Public Use
  Company Number: CN-JNJFOC-20130117053

PATIENT
  Sex: 0

DRUGS (1)
  1. RISPERDAL [Suspect]
     Indication: SCHIZOPHRENIA
     Dosage: STARTING DOSE OF 1 MG, ONCE A DAY, INCREASED TO 2-6 MG, ONCE A DAY WITHIN 2 WEEKS
     Route: 048

REACTIONS (4)
  - Sinus arrhythmia [Recovering/Resolving]
  - Electrocardiogram ST-T change [Recovering/Resolving]
  - Sinus bradycardia [Recovering/Resolving]
  - Sinus tachycardia [Recovering/Resolving]
